FAERS Safety Report 10429314 (Version 1)
Quarter: 2014Q3

REPORT INFORMATION
  Report Type: Spontaneous
  Country: US (occurrence: None)
  Receive Date: 20140902
  Receipt Date: 20140902
  Transmission Date: 20150326
  Serious: Yes (Hospitalization)
  Sender: FDA-Public Use
  Company Number: None

PATIENT
  Age: 70 Year
  Sex: Female

DRUGS (12)
  1. FUROSEMIDE. [Concomitant]
     Active Substance: FUROSEMIDE
  2. SIMVASTATIN. [Concomitant]
     Active Substance: SIMVASTATIN
  3. AMLODIPINE [Concomitant]
     Active Substance: AMLODIPINE BESYLATE
  4. ASPIRIN. [Concomitant]
     Active Substance: ASPIRIN
  5. SODIUM BICARBONATE. [Concomitant]
     Active Substance: SODIUM BICARBONATE
  6. GLIPIZIDE. [Suspect]
     Active Substance: GLIPIZIDE
     Indication: PRODUCT USED FOR UNKNOWN INDICATION
     Route: 048
     Dates: start: 20140717
  7. CALCITRIOL. [Concomitant]
     Active Substance: CALCITRIOL
  8. CARVEDILOL. [Concomitant]
     Active Substance: CARVEDILOL
  9. SEVELAMER [Concomitant]
     Active Substance: SEVELAMER
  10. GERAMICIN [Concomitant]
  11. TRAMADOL [Concomitant]
     Active Substance: TRAMADOL
  12. BUDESONIDE. [Concomitant]
     Active Substance: BUDESONIDE

REACTIONS (2)
  - Unresponsive to stimuli [None]
  - Hypothermia [None]

NARRATIVE: CASE EVENT DATE: 20140718
